FAERS Safety Report 7617108-X (Version None)
Quarter: 2011Q3

REPORT INFORMATION
  Report Type: 
  Country: None (occurrence: None)
  Receive Date: 20110718
  Receipt Date: 20110706
  Transmission Date: 20111222
  Serious: Yes (Disabling, Other)
  Sender: FDA-Public Use
  Company Number: US-BAYER-201010224NA

PATIENT
  Age: 48 Year
  Sex: Female
  Weight: 83.9 kg

DRUGS (11)
  1. CEPHALEXIN [Concomitant]
  2. NEURONTIN [Concomitant]
  3. PENICILLIN [Concomitant]
     Indication: PHARYNGITIS STREPTOCOCCAL
  4. SYNTHROID [Concomitant]
     Indication: HYPOTHYROIDISM
     Dosage: UNK
     Dates: start: 20040101
  5. BELLATAL [Concomitant]
     Dosage: UNK
     Dates: start: 20060609
  6. ATIVAN [Concomitant]
  7. ZANTAC [Concomitant]
  8. YASMIN [Suspect]
     Dosage: UNK
     Route: 048
     Dates: start: 20041214, end: 20060609
  9. AMBIEN [Concomitant]
  10. OMEPRAZOLE [Concomitant]
     Dosage: UNK
     Dates: start: 20060413, end: 20060518
  11. RHINOCORT [Concomitant]
     Indication: SEASONAL ALLERGY
     Dosage: UNK
     Route: 045
     Dates: start: 20040101

REACTIONS (8)
  - HEMIPARESIS [None]
  - ISCHAEMIC STROKE [None]
  - MEMORY IMPAIRMENT [None]
  - CONVULSION [None]
  - COORDINATION ABNORMAL [None]
  - FATIGUE [None]
  - DEEP VEIN THROMBOSIS [None]
  - PULMONARY EMBOLISM [None]
